FAERS Safety Report 7609869-0 (Version None)
Quarter: 2011Q3

REPORT INFORMATION
  Report Type: 
  Country: None (occurrence: None)
  Receive Date: 20110714
  Receipt Date: 20110703
  Transmission Date: 20111222
  Serious: Yes (Death)
  Sender: FDA-Public Use
  Company Number: US-BAXTER-2011BH022984

PATIENT

DRUGS (22)
  1. IFOSFAMIDE [Suspect]
     Indication: BURKITT'S LYMPHOMA
     Route: 065
  2. PREDNISONE [Suspect]
     Indication: BURKITT'S LYMPHOMA
     Route: 065
  3. CYTARABINE [Suspect]
     Indication: BURKITT'S LYMPHOMA
     Route: 065
  4. DOXORUBICIN HCL [Suspect]
     Indication: BURKITT'S LYMPHOMA
     Route: 065
  5. FILGRASTIM [Suspect]
     Indication: BURKITT'S LEUKAEMIA
     Route: 065
  6. CYCLOPHOSPHAMIDE [Suspect]
     Indication: BURKITT'S LYMPHOMA
     Route: 065
  7. IFOSFAMIDE [Suspect]
     Indication: BURKITT'S LEUKAEMIA
     Route: 065
  8. PREDNISONE [Suspect]
     Indication: BURKITT'S LEUKAEMIA
     Route: 065
  9. CYTARABINE [Suspect]
     Indication: BURKITT'S LEUKAEMIA
     Route: 065
  10. ETOPOSIDE [Suspect]
     Indication: BURKITT'S LEUKAEMIA
     Route: 065
  11. ETOPOSIDE [Suspect]
     Indication: BURKITT'S LYMPHOMA
     Route: 065
  12. METHOTREXATE [Suspect]
     Indication: BURKITT'S LEUKAEMIA
     Dosage: DOSE UNIT:GRAMS PER METERS SQUARED
     Route: 065
  13. METHOTREXATE [Suspect]
     Indication: BURKITT'S LYMPHOMA
     Dosage: DOSE UNIT:GRAMS PER METERS SQUARED
     Route: 065
  14. DOXORUBICIN HCL [Suspect]
     Indication: BURKITT'S LEUKAEMIA
     Route: 065
  15. DEXAMETHASONE [Suspect]
     Indication: BURKITT'S LYMPHOMA
     Route: 065
  16. CYCLOPHOSPHAMIDE [Suspect]
     Indication: BURKITT'S LEUKAEMIA
     Route: 065
  17. VINCRISTINE [Suspect]
     Indication: BURKITT'S LEUKAEMIA
     Route: 065
  18. RITUXIMAB [Suspect]
     Indication: BURKITT'S LEUKAEMIA
     Route: 065
  19. VINCRISTINE [Suspect]
     Indication: BURKITT'S LYMPHOMA
     Route: 065
  20. DEXAMETHASONE [Suspect]
     Indication: BURKITT'S LEUKAEMIA
     Route: 065
  21. FILGRASTIM [Suspect]
     Indication: BURKITT'S LYMPHOMA
     Route: 065
  22. RITUXIMAB [Suspect]
     Indication: BURKITT'S LYMPHOMA
     Route: 065

REACTIONS (1)
  - INFECTION [None]
